FAERS Safety Report 22600608 (Version 1)
Quarter: 2023Q2

REPORT INFORMATION
  Report Type: Spontaneous
  Country: US (occurrence: None)
  Receive Date: 20230613
  Receipt Date: 20230613
  Transmission Date: 20230721
  Serious: Yes (Other)
  Sender: FDA-Public Use
  Company Number: None

PATIENT
  Age: 77 Year
  Sex: Male
  Weight: 90 kg

DRUGS (1)
  1. DORZOLAMIDE\TIMOLOL [Suspect]
     Active Substance: DORZOLAMIDE\TIMOLOL
     Indication: Glaucoma
     Dosage: FREQUENCY : TWICE A DAY;?
     Route: 047
     Dates: start: 20230422, end: 20230601

REACTIONS (3)
  - Therapy cessation [None]
  - Eyelid rash [None]
  - Eyelids pruritus [None]

NARRATIVE: CASE EVENT DATE: 20230501
